FAERS Safety Report 18564307 (Version 1)
Quarter: 2020Q4

REPORT INFORMATION
  Report Type: Spontaneous
  Country: US (occurrence: US)
  Receive Date: 20201130
  Receipt Date: 20201130
  Transmission Date: 20210114
  Serious: No
  Sender: FDA-Public Use
  Company Number: None

PATIENT
  Age: 17 Year
  Sex: Female
  Weight: 72 kg

DRUGS (2)
  1. LITHIUM. [Concomitant]
     Active Substance: LITHIUM
  2. ABILIFY [Suspect]
     Active Substance: ARIPIPRAZOLE
     Indication: AFFECTIVE DISORDER
     Dosage: ?          QUANTITY:1 TABLET(S);?
     Route: 048
     Dates: start: 20160128, end: 20200916

REACTIONS (8)
  - Sexually inappropriate behaviour [None]
  - Legal problem [None]
  - Behaviour disorder [None]
  - Aggression [None]
  - Substance use [None]
  - Alcohol use [None]
  - Compulsive shopping [None]
  - Condition aggravated [None]

NARRATIVE: CASE EVENT DATE: 20200901
